FAERS Safety Report 8857046 (Version 1)
Quarter: 2012Q4

REPORT INFORMATION
  Report Type: 
  Country: US (occurrence: US)
  Receive Date: 20121023
  Receipt Date: 20121023
  Transmission Date: 20130627
  Serious: No
  Sender: FDA-Public Use
  Company Number: US-AMGEN-USASP2012056292

PATIENT
  Age: 55 Year
  Sex: Female

DRUGS (1)
  1. ENBREL [Suspect]
     Indication: PSORIATIC ARTHROPATHY
     Dosage: 50 mg, qwk
     Route: 058
     Dates: start: 20120717

REACTIONS (6)
  - Drug ineffective [Unknown]
  - Headache [Not Recovered/Not Resolved]
  - Spinal pain [Unknown]
  - Skin exfoliation [Unknown]
  - Arthralgia [Not Recovered/Not Resolved]
  - Chest pain [Unknown]
